FAERS Safety Report 9471515 (Version 1)
Quarter: 2013Q3

REPORT INFORMATION
  Report Type: Report from Study
  Country: US (occurrence: US)
  Receive Date: 20130822
  Receipt Date: 20130822
  Transmission Date: 20140515
  Serious: No
  Sender: FDA-Public Use
  Company Number: US-US-EMD SERONO, INC.-7230969

PATIENT
  Age: 29 Year
  Sex: Female

DRUGS (2)
  1. REBIF [Suspect]
     Indication: MULTIPLE SCLEROSIS
     Route: 058
     Dates: start: 20130414
  2. REBIF [Suspect]
     Route: 058
     Dates: start: 20130812

REACTIONS (2)
  - Migraine [Recovered/Resolved]
  - Injection site reaction [Recovered/Resolved]
